FAERS Safety Report 23575796 (Version 1)
Quarter: 2024Q1

REPORT INFORMATION
  Report Type: Spontaneous
  Country: JP (occurrence: JP)
  Receive Date: 20240228
  Receipt Date: 20240228
  Transmission Date: 20240409
  Serious: Yes (Life-Threatening, Other)
  Sender: FDA-Public Use
  Company Number: JP-MLMSERVICE-20240214-4831369-1

PATIENT
  Age: 69 Year
  Sex: Male

DRUGS (6)
  1. GEMCITABINE HYDROCHLORIDE [Suspect]
     Active Substance: GEMCITABINE HYDROCHLORIDE
     Indication: Bladder cancer
     Dosage: GEMCITABINE 1000 MG/M2 (DAYS 1 AND 8), 28-DAY CYCLE-TWO COURSES WERE ADMINISTERED
     Route: 041
  2. GEMCITABINE HYDROCHLORIDE [Suspect]
     Active Substance: GEMCITABINE HYDROCHLORIDE
     Indication: Signet-ring cell carcinoma
  3. CISPLATIN [Suspect]
     Active Substance: CISPLATIN
     Indication: Bladder cancer
     Dosage: 70 MG/M2 (DAY 2), 28-DAY CYCLE-TWO COURSES WERE ADMINISTERED
     Route: 065
  4. CISPLATIN [Suspect]
     Active Substance: CISPLATIN
     Indication: Signet-ring cell carcinoma
  5. PACLITAXEL [Suspect]
     Active Substance: PACLITAXEL
     Indication: Bladder cancer
     Dosage: 80 MG/M2 (DAYS 1 AND 8), 28-DAY CYCLE-TWO COURSES WERE ADMINISTERED
     Route: 065
  6. PACLITAXEL [Suspect]
     Active Substance: PACLITAXEL
     Indication: Signet-ring cell carcinoma

REACTIONS (1)
  - Neutropenia [Unknown]
